FAERS Safety Report 16162416 (Version 1)
Quarter: 2019Q2

REPORT INFORMATION
  Report Type: Spontaneous
  Country: US (occurrence: US)
  Receive Date: 20190404
  Receipt Date: 20190404
  Transmission Date: 20190711
  Serious: Yes (Disabling)
  Sender: FDA-Public Use
  Company Number: None

PATIENT
  Age: 56 Year
  Sex: Male
  Weight: 85.5 kg

DRUGS (7)
  1. CANDESARTAN. [Concomitant]
     Active Substance: CANDESARTAN
  2. VITAMIN D [Concomitant]
     Active Substance: VITAMIN D NOS
  3. MULTI-VITAMIN [Concomitant]
     Active Substance: .ALPHA.-TOCOPHEROL ACETATE, DL-\ASCORBIC ACID\CYANOCOBALAMIN\FLUORIDE ION\FOLIC ACID\NIACIN\PYRIDOXINE\RIBOFLAVIN\THIAMINE\VITAMIN A\VITAMIN D
  4. IC ATORVASTATIN 20MG TABLET [Suspect]
     Active Substance: ATORVASTATIN
     Indication: HYPERCHOLESTEROLAEMIA
     Dosage: ?          QUANTITY:1 TABLET(S);?
     Route: 048
     Dates: start: 20171104, end: 20171130
  5. METHOTREXATE. [Concomitant]
     Active Substance: METHOTREXATE
  6. COLCRYS [Concomitant]
     Active Substance: COLCHICINE
  7. FOLIC ACID. [Concomitant]
     Active Substance: FOLIC ACID

REACTIONS (5)
  - Myalgia [None]
  - Autoimmune disorder [None]
  - Insomnia [None]
  - Polymyalgia rheumatica [None]
  - Arthralgia [None]

NARRATIVE: CASE EVENT DATE: 20171130
